FAERS Safety Report 22650327 (Version 1)
Quarter: 2023Q2

REPORT INFORMATION
  Report Type: Spontaneous
  Country: CA (occurrence: None)
  Receive Date: 20230628
  Receipt Date: 20230628
  Transmission Date: 20230721
  Serious: Yes (Other)
  Sender: FDA-Public Use
  Company Number: CA-PFIZER INC-202300229572

PATIENT
  Age: 60 Year
  Sex: Male
  Weight: 86 kg

DRUGS (9)
  1. METHOTREXATE [Suspect]
     Active Substance: METHOTREXATE
     Indication: Product used for unknown indication
     Dates: start: 2021
  2. METHOTREXATE [Suspect]
     Active Substance: METHOTREXATE
  3. XARELTO [Concomitant]
     Active Substance: RIVAROXABAN
  4. LEVOMEPROMAZINE MALEATE [Concomitant]
     Active Substance: LEVOMEPROMAZINE MALEATE
  5. ZOPICLONE [Concomitant]
     Active Substance: ZOPICLONE
  6. CRESTOR [Concomitant]
     Active Substance: ROSUVASTATIN CALCIUM
  7. CHLORMEZANONE [Concomitant]
     Active Substance: CHLORMEZANONE
  8. FOLIC ACID [Concomitant]
     Active Substance: FOLIC ACID
  9. MISOPROSTOL [Concomitant]
     Active Substance: MISOPROSTOL

REACTIONS (2)
  - Diarrhoea [Not Recovered/Not Resolved]
  - Abdominal pain [Not Recovered/Not Resolved]
